FAERS Safety Report 8910753 (Version 1)
Quarter: 2012Q4

REPORT INFORMATION
  Report Type: 
  Country: US (occurrence: US)
  Receive Date: 20121115
  Receipt Date: 20121115
  Transmission Date: 20130627
  Serious: No
  Sender: FDA-Public Use
  Company Number: US-BRISTOL-MYERS SQUIBB COMPANY-16296154

PATIENT
  Age: 65 Year
  Sex: Male
  Weight: 103 kg

DRUGS (18)
  1. METFORMIN [Suspect]
     Dosage: 1 Df : 500mg ER (4 pills)
  2. PLAVIX [Suspect]
     Dosage: about 1 year,pills before eating early in the morning
     Route: 048
  3. AMLODIPINE [Concomitant]
  4. ASPIRIN [Concomitant]
     Dosage: Aspirin EC
  5. ATENOLOL [Concomitant]
  6. LANTUS [Concomitant]
     Dosage: Lantus Solostar,1 Df : 20U
     Route: 058
  7. FEXOFENADINE HCL [Concomitant]
  8. FLUCONAZOLE [Concomitant]
     Indication: FUNGAL TEST POSITIVE
  9. FLUOXETINE [Concomitant]
  10. FLUTICASONE PROPIONATE [Concomitant]
     Dosage: 1 df: 2 sprays in each nostrils ,50mcg-ACT suspension
     Route: 045
  11. FUROSEMIDE [Concomitant]
  12. ISOSORBIDE MONONITRATE [Concomitant]
     Dosage: 1 DF :1/2 tablet,CR 60mg
  13. LOSARTAN POTASSIUM [Concomitant]
  14. MOMETASONE FUROATE [Concomitant]
     Dosage: 0.1% cream affected areas yeast in groin area
  15. NITROSTAT [Concomitant]
     Indication: CHEST PAIN
     Route: 060
  16. OMEPRAZOLE [Concomitant]
     Dosage: ER
  17. SIMVASTATIN [Concomitant]
  18. VENTOLIN [Concomitant]
     Dosage: Ventolin Aerosol solution

REACTIONS (3)
  - Abdominal discomfort [Unknown]
  - Abdominal pain upper [Unknown]
  - Fungal infection [Unknown]
